FAERS Safety Report 10359644 (Version 1)
Quarter: 2014Q3

REPORT INFORMATION
  Report Type: Report from Study
  Country: US (occurrence: US)
  Receive Date: 20140804
  Receipt Date: 20140804
  Transmission Date: 20150326
  Serious: Yes (Hospitalization)
  Sender: FDA-Public Use
  Company Number: US-SA-2014SA103881

PATIENT
  Sex: Female

DRUGS (4)
  1. DEPACON [Suspect]
     Active Substance: VALPROATE SODIUM
     Indication: PRODUCT USED FOR UNKNOWN INDICATION
     Route: 065
  2. LEUPRORELIN ACETATE [Suspect]
     Active Substance: LEUPROLIDE ACETATE
     Indication: OVARIAN CYST
     Route: 065
     Dates: start: 201405
  3. BENADRYL [Concomitant]
     Active Substance: DIPHENHYDRAMINE HYDROCHLORIDE
     Indication: SEASONAL ALLERGY
  4. BOTOX [Concomitant]
     Active Substance: ONABOTULINUMTOXINA

REACTIONS (12)
  - Urticaria [Unknown]
  - Feeling abnormal [Unknown]
  - Headache [Unknown]
  - Ageusia [Unknown]
  - Weight increased [Unknown]
  - Dizziness [Unknown]
  - Cerebrovascular accident [Unknown]
  - Migraine [Unknown]
  - Hemiparesis [Unknown]
  - Weight decreased [Unknown]
  - Rash papular [Unknown]
  - Insomnia [Unknown]
